FAERS Safety Report 15999526 (Version 1)
Quarter: 2019Q1

REPORT INFORMATION
  Report Type: Spontaneous
  Country: US (occurrence: US)
  Receive Date: 20190225
  Receipt Date: 20190225
  Transmission Date: 20190418
  Serious: Yes (Other)
  Sender: FDA-Public Use
  Company Number: US-JNJFOC-20190231709

PATIENT
  Age: 35 Year
  Sex: Female
  Weight: 118.62 kg

DRUGS (1)
  1. INVOKANA [Suspect]
     Active Substance: CANAGLIFLOZIN
     Indication: TYPE 2 DIABETES MELLITUS
     Route: 048
     Dates: start: 20150113

REACTIONS (3)
  - Extremity necrosis [Unknown]
  - Toe amputation [Unknown]
  - Localised infection [Unknown]

NARRATIVE: CASE EVENT DATE: 20161214
